FAERS Safety Report 18151299 (Version 1)
Quarter: 2020Q3

REPORT INFORMATION
  Report Type: Spontaneous
  Country: US (occurrence: US)
  Receive Date: 20200814
  Receipt Date: 20200814
  Transmission Date: 20201103
  Serious: No
  Sender: FDA-Public Use
  Company Number: None

PATIENT
  Age: 49 Year
  Sex: Female
  Weight: 61.2 kg

DRUGS (1)
  1. RIZATRIPTAN 10 MG TABLET [Suspect]
     Active Substance: RIZATRIPTAN
     Indication: MIGRAINE
     Dosage: ?          QUANTITY:1 TABLET(S);?
     Route: 048
     Dates: start: 20200209, end: 20200209

REACTIONS (8)
  - Nausea [None]
  - Dizziness [None]
  - Asthenia [None]
  - Myalgia [None]
  - Hypoaesthesia [None]
  - Headache [None]
  - Parosmia [None]
  - Pyrexia [None]

NARRATIVE: CASE EVENT DATE: 20200209
